FAERS Safety Report 15238783 (Version 1)
Quarter: 2018Q3

REPORT INFORMATION
  Report Type: Spontaneous
  Country: TR (occurrence: TR)
  Receive Date: 20180803
  Receipt Date: 20180803
  Transmission Date: 20181010
  Serious: Yes (Hospitalization, Other)
  Sender: FDA-Public Use
  Company Number: TR-GILEAD-2018-0352984

PATIENT
  Age: 71 Year
  Sex: Female

DRUGS (1)
  1. HARVONI [Suspect]
     Active Substance: LEDIPASVIR\SOFOSBUVIR
     Indication: HEPATITIS C
     Dosage: UNK DF, UNK
     Route: 065
     Dates: start: 201806

REACTIONS (5)
  - Blood creatinine increased [Unknown]
  - Depressed level of consciousness [Unknown]
  - Respiratory disorder [Unknown]
  - Diarrhoea [Unknown]
  - Nephropathy [Unknown]
